FAERS Safety Report 10430749 (Version 3)
Quarter: 2016Q1

REPORT INFORMATION
  Report Type: Report from Study
  Country: US (occurrence: US)
  Receive Date: 20140904
  Receipt Date: 20160210
  Transmission Date: 20160525
  Serious: Yes (Hospitalization)
  Sender: FDA-Public Use
  Company Number: US-BIOMARINAP-US-2014-104019

PATIENT
  Sex: Male

DRUGS (1)
  1. ALDURAZYME [Suspect]
     Active Substance: LARONIDASE
     Indication: MUCOPOLYSACCHARIDOSIS I
     Dosage: 23.2 MG, QW
     Route: 042
     Dates: start: 200909

REACTIONS (4)
  - Urinary tract infection [Not Recovered/Not Resolved]
  - Pain [Unknown]
  - Osteotomy [Unknown]
  - Pyrexia [Unknown]

NARRATIVE: CASE EVENT DATE: 2013
